FAERS Safety Report 25427812 (Version 2)
Quarter: 2025Q3

REPORT INFORMATION
  Report Type: Spontaneous
  Country: IN (occurrence: IN)
  Receive Date: 20250612
  Receipt Date: 20250814
  Transmission Date: 20251021
  Serious: Yes (Other)
  Sender: PFIZER
  Company Number: IN-PFIZER INC-PV202500054337

PATIENT
  Age: 77 Year
  Sex: Female

DRUGS (12)
  1. LORLATINIB [Suspect]
     Active Substance: LORLATINIB
     Indication: Lung neoplasm malignant
     Dosage: 75 MG, 1X/DAY (WITH FOOD, TO BE CONTINUE TO BE TAKEN AT SAME TIME OF DAY, DO NOT CRUSH, DO NOT CHEW)
     Route: 048
     Dates: start: 20250504
  2. LORLATINIB [Suspect]
     Active Substance: LORLATINIB
     Dosage: 75 MG, 1X/DAY (WITH FOOD, TO BE CONTINUE TO BE TAKEN AT SAME TIME OF DAY, DO NOT CRUSH, DO NOT CHEW)
     Route: 048
     Dates: start: 20250604
  3. LORLATINIB [Suspect]
     Active Substance: LORLATINIB
     Dosage: 100 MG, 1X/DAY (WITH FOOD, DO NOT CRUSH)
     Route: 048
  4. DENOSUMAB [Concomitant]
     Active Substance: DENOSUMAB
     Dosage: 120 SC EVERY 3 MONTH
     Route: 058
     Dates: start: 202507
  5. TELMA AM [Concomitant]
     Dosage: 40 MG, 1X/DAY
  6. METOPROLOL SUCCINATE [Concomitant]
     Active Substance: METOPROLOL SUCCINATE
     Dosage: 25 MG, 1X/DAY
  7. ROSUVASTATIN CALCIUM [Concomitant]
     Active Substance: ROSUVASTATIN CALCIUM
     Dosage: 20 MG, 1X/DAY
  8. VITAMIN D NOS [Concomitant]
     Active Substance: CHOLECALCIFEROL\ERGOCALCIFEROL
     Dosage: 60000 IU, MONTHLY (WITH MILK)
  9. NERVEHEAL [Concomitant]
     Dosage: 1500 UG, 1X/DAY
  10. CALGROW XT [Concomitant]
     Dosage: 1 DF, 1X/DAY
  11. CREMAFFIN [Concomitant]
     Indication: Constipation
  12. INDAPAMIDE [Concomitant]
     Active Substance: INDAPAMIDE
     Dosage: 1 TAB OD

REACTIONS (3)
  - Dysentery [Recovered/Resolved]
  - Lipids abnormal [Unknown]
  - Diarrhoea [Unknown]
